FAERS Safety Report 21719887 (Version 1)
Quarter: 2022Q4

REPORT INFORMATION
  Report Type: Other
  Country: US (occurrence: US)
  Receive Date: 20221213
  Receipt Date: 20221213
  Transmission Date: 20230113
  Serious: Yes (Hospitalization, Other)
  Sender: FDA-Public Use
  Company Number: US-HLS-202104718

PATIENT
  Age: 51 Year
  Sex: Female

DRUGS (20)
  1. CLOZAPINE [Suspect]
     Active Substance: CLOZAPINE
     Indication: Schizoaffective disorder
     Dosage: 100 MG ORALLY IN THE MORNING AND 400 MG ORALLY IN THE EVENING
     Route: 048
  2. CLOZAPINE [Suspect]
     Active Substance: CLOZAPINE
     Indication: Schizoaffective disorder
     Dosage: 100 MG ORALLY IN THE MORNING AND 450 MG ORALLY IN THE EVENING
     Route: 048
  3. CLOZAPINE [Suspect]
     Active Substance: CLOZAPINE
     Indication: Schizoaffective disorder
     Dosage: 100 MG ORALLY IN THE MORNING AND 500 MG ORALLY IN THE EVENING
     Route: 048
  4. VENLAFAXINE [Concomitant]
     Active Substance: VENLAFAXINE HYDROCHLORIDE
     Indication: Product used for unknown indication
     Dosage: 375MG DAILY
     Route: 048
  5. BUPROPION HYDROCHLORIDE\NALTREXONE HYDROCHLORIDE [Concomitant]
     Active Substance: BUPROPION HYDROCHLORIDE\NALTREXONE HYDROCHLORIDE
     Indication: Weight decreased
     Dosage: 180MG/16MG X2 DAILY
     Route: 048
  6. BUPROPION HYDROCHLORIDE\NALTREXONE HYDROCHLORIDE [Concomitant]
     Active Substance: BUPROPION HYDROCHLORIDE\NALTREXONE HYDROCHLORIDE
     Indication: Weight decreased
     Dosage: 90MG/8MG X2 DAILY
     Route: 048
  7. LURASIDONE [Concomitant]
     Active Substance: LURASIDONE
     Dosage: 160MG DAILY
     Route: 048
  8. ASPIRIN [Concomitant]
     Active Substance: ASPIRIN
     Dosage: UNKNOWN
     Route: 065
  9. atorvastatin, [Concomitant]
     Dosage: UNKNOWN
     Route: 065
  10. LEVOTHYROXINE [Concomitant]
     Active Substance: LEVOTHYROXINE
     Dosage: UNKNOWN
     Route: 065
  11. OMEPRAZOLE [Concomitant]
     Active Substance: OMEPRAZOLE
     Dosage: UNKNOWN
     Route: 065
  12. PROPRANOLOL [Concomitant]
     Active Substance: PROPRANOLOL HYDROCHLORIDE
     Route: 065
  13. TOPIRAMATE [Concomitant]
     Active Substance: TOPIRAMATE
     Dosage: 200 MG ORALLY TWICE DAILY
     Route: 048
  14. ESCITALOPRAM [Concomitant]
     Active Substance: ESCITALOPRAM OXALATE
     Dosage: UNKNOWN
     Route: 065
  15. FUROSEMIDE [Concomitant]
     Active Substance: FUROSEMIDE
     Route: 065
  16. LACTOBACILLUS ACIDOPHILUS [Concomitant]
     Active Substance: LACTOBACILLUS ACIDOPHILUS
     Dosage: UNKNOWN
     Route: 065
  17. MELATONIN [Concomitant]
     Active Substance: MELATONIN
     Dosage: UNKNOWN
     Route: 065
  18. METFORMIN [Concomitant]
     Active Substance: METFORMIN HYDROCHLORIDE
     Dosage: UNKNOWN
     Route: 065
  19. VITAMINS [Concomitant]
     Active Substance: VITAMINS
     Route: 065
  20. RISPERIDONE [Concomitant]
     Active Substance: RISPERIDONE
     Dosage: UNKNOWN
     Route: 065

REACTIONS (6)
  - Bundle branch block [Unknown]
  - Hallucination, auditory [Unknown]
  - Tonic clonic movements [Unknown]
  - Generalised tonic-clonic seizure [Recovered/Resolved]
  - Weight increased [Unknown]
  - Depression [Unknown]
